FAERS Safety Report 19057544 (Version 4)
Quarter: 2021Q3

REPORT INFORMATION
  Report Type: Report from Study
  Country: US (occurrence: US)
  Receive Date: 20210324
  Receipt Date: 20210823
  Transmission Date: 20211014
  Serious: No
  Sender: FDA-Public Use
  Company Number: NVSC2021US064030

PATIENT
  Sex: Female

DRUGS (4)
  1. PIQRAY [Suspect]
     Active Substance: ALPELISIB
     Dosage: 300 MG
     Route: 048
  2. PIQRAY [Suspect]
     Active Substance: ALPELISIB
     Dosage: 150 MG, QD
     Route: 048
  3. PIQRAY [Suspect]
     Active Substance: ALPELISIB
     Indication: BREAST CANCER
     Dosage: 300 MG, QD
     Route: 048
     Dates: start: 202009
  4. PIQRAY [Suspect]
     Active Substance: ALPELISIB
     Dosage: 160 MG, QD
     Route: 048

REACTIONS (4)
  - Acne [Unknown]
  - Diarrhoea [Recovering/Resolving]
  - Liver disorder [Unknown]
  - Hyperglycaemia [Unknown]
